FAERS Safety Report 20947265 (Version 1)
Quarter: 2022Q2

REPORT INFORMATION
  Report Type: Spontaneous
  Country: US (occurrence: US)
  Receive Date: 20220610
  Receipt Date: 20220610
  Transmission Date: 20220721
  Serious: No
  Sender: FDA-Public Use
  Company Number: US-MYLANLABS-2022M1034163

PATIENT
  Age: 62 Year
  Sex: Female
  Weight: 54.43 kg

DRUGS (3)
  1. PREDNISONE [Suspect]
     Active Substance: PREDNISONE
     Indication: Rheumatoid arthritis
     Dosage: 5 MILLIGRAM, QD
     Route: 048
  2. GABAPENTIN [Concomitant]
     Active Substance: GABAPENTIN
     Indication: Neuropathy peripheral
     Dosage: 300 MILLIGRAM, BID
     Route: 048
  3. COVID-19 vaccine [Concomitant]
     Dosage: UNK
     Dates: start: 20220424

REACTIONS (10)
  - Product dose omission issue [Unknown]
  - Tremor [Unknown]
  - Migraine [Unknown]
  - Photopsia [Unknown]
  - Pyrexia [Unknown]
  - Insomnia [Unknown]
  - Hyperhidrosis [Unknown]
  - Tinnitus [Recovered/Resolved]
  - Influenza [Unknown]
  - Viral infection [Unknown]

NARRATIVE: CASE EVENT DATE: 20220401
